FAERS Safety Report 7379568-1 (Version None)
Quarter: 2011Q1

REPORT INFORMATION
  Report Type: 
  Country: None (occurrence: None)
  Receive Date: 20110329
  Receipt Date: 20110318
  Transmission Date: 20110831
  Serious: Yes (Other)
  Sender: FDA-Public Use
  Company Number: AT-BAXTER-2010BH024935

PATIENT
  Age: 79 Year
  Sex: Male
  Weight: 70 kg

DRUGS (14)
  1. GABAPENTIN [Concomitant]
  2. GAMMAGARD LIQUID [Suspect]
     Indication: PRODUCT USED FOR UNKNOWN INDICATION
     Route: 042
     Dates: start: 20100925, end: 20100925
  3. REPAGLINIDE [Concomitant]
  4. TRAMABENE [Concomitant]
  5. SIMVASTATIN [Concomitant]
  6. CIPROXINE [Concomitant]
  7. EZETIMIBE [Concomitant]
  8. CONCOR COR [Concomitant]
  9. LASIX [Concomitant]
  10. ESOMEPRAZOLE [Concomitant]
  11. LOVENOX [Concomitant]
  12. VICARD [Concomitant]
  13. AMLODIPINE [Concomitant]
  14. ASPIRIN [Concomitant]

REACTIONS (4)
  - CHILLS [None]
  - PYREXIA [None]
  - BACK PAIN [None]
  - ABDOMINAL PAIN [None]
